FAERS Safety Report 21947427 (Version 9)
Quarter: 2024Q2

REPORT INFORMATION
  Report Type: Report from Study
  Country: US (occurrence: US)
  Receive Date: 20230202
  Receipt Date: 20240429
  Transmission Date: 20240716
  Serious: No
  Sender: FDA-Public Use
  Company Number: US-ACADIA PHARMACEUTICALS INC.-ACA-2023-PIM-000133

PATIENT
  Age: 83 Year
  Sex: Male

DRUGS (5)
  1. NUPLAZID [Suspect]
     Active Substance: PIMAVANSERIN TARTRATE
     Indication: Parkinson^s disease psychosis
     Dosage: 34 MILLIGRAM, QD
     Route: 048
     Dates: start: 20221220
  2. NUPLAZID [Suspect]
     Active Substance: PIMAVANSERIN TARTRATE
     Indication: Parkinson^s disease
     Dosage: 34 MILLIGRAM, QD
     Route: 048
     Dates: start: 20230124
  3. NUPLAZID [Suspect]
     Active Substance: PIMAVANSERIN TARTRATE
     Dosage: 34 MILLIGRAM, QD
     Route: 048
  4. NUPLAZID [Suspect]
     Active Substance: PIMAVANSERIN TARTRATE
     Dosage: 34 MILLIGRAM, QD
     Route: 048
  5. HALOPERIDOL [Concomitant]
     Active Substance: HALOPERIDOL
     Dosage: 2 MILLIGRAM

REACTIONS (19)
  - Product dose omission issue [Unknown]
  - Product dose omission issue [Unknown]
  - Nonspecific reaction [Recovered/Resolved]
  - Product dose omission issue [Recovered/Resolved]
  - Product dose omission issue [Unknown]
  - Product dose omission issue [Unknown]
  - Nonspecific reaction [Unknown]
  - Nonspecific reaction [Unknown]
  - Product dose omission issue [Not Recovered/Not Resolved]
  - Nonspecific reaction [Not Recovered/Not Resolved]
  - Product dose omission issue [Unknown]
  - Confusional state [Unknown]
  - Hallucination [Unknown]
  - Hallucination [Recovered/Resolved]
  - Hallucination [Unknown]
  - Oedema peripheral [Unknown]
  - Hallucination [Not Recovered/Not Resolved]
  - Somnolence [Recovered/Resolved]
  - Hallucinations, mixed [Recovered/Resolved]

NARRATIVE: CASE EVENT DATE: 20230816
